FAERS Safety Report 15378790 (Version 2)
Quarter: 2018Q3

REPORT INFORMATION
  Report Type: Report from Study
  Country: US (occurrence: US)
  Receive Date: 20180913
  Receipt Date: 20180928
  Transmission Date: 20181010
  Serious: Yes (Death, Hospitalization)
  Sender: FDA-Public Use
  Company Number: US-EISAI MEDICAL RESEARCH-EC-2018-044317

PATIENT
  Age: 53 Year
  Sex: Female
  Weight: 75 kg

DRUGS (6)
  1. ERIBULIN [Suspect]
     Active Substance: ERIBULIN
     Indication: TRIPLE NEGATIVE BREAST CANCER
     Route: 041
     Dates: start: 20180821, end: 20180904
  2. FENTANYL. [Concomitant]
     Active Substance: FENTANYL
  3. ATIVAN [Suspect]
     Active Substance: LORAZEPAM
     Indication: NAUSEA
     Route: 041
     Dates: start: 20180821, end: 20180821
  4. PEMBROLIZUMAB. [Suspect]
     Active Substance: PEMBROLIZUMAB
     Indication: TRIPLE NEGATIVE BREAST CANCER
     Route: 041
     Dates: start: 20180821, end: 20180821
  5. OXYCODONE [Concomitant]
     Active Substance: OXYCODONE
  6. FLUMAZENIL. [Concomitant]
     Active Substance: FLUMAZENIL

REACTIONS (2)
  - Acute respiratory failure [Fatal]
  - Hypoxia [Recovered/Resolved with Sequelae]

NARRATIVE: CASE EVENT DATE: 20180821
